FAERS Safety Report 7738219-4 (Version None)
Quarter: 2011Q3

REPORT INFORMATION
  Report Type: 
  Country: None (occurrence: None)
  Receive Date: 20110908
  Receipt Date: 20110830
  Transmission Date: 20111222
  Serious: Yes (Hospitalization)
  Sender: FDA-Public Use
  Company Number: JP-CEPHALON-2011004420

PATIENT
  Age: 82 Year
  Sex: Male
  Weight: 62 kg

DRUGS (3)
  1. TREANDA [Suspect]
     Indication: MANTLE CELL LYMPHOMA
     Route: 042
     Dates: start: 20110713, end: 20110714
  2. APREPITANT [Concomitant]
     Dates: start: 20110802, end: 20110802
  3. TREANDA [Suspect]
     Route: 042
     Dates: start: 20110802, end: 20110802

REACTIONS (2)
  - DRUG ERUPTION [None]
  - PYREXIA [None]
